FAERS Safety Report 18987356 (Version 4)
Quarter: 2021Q2

REPORT INFORMATION
  Report Type: Spontaneous
  Country: ES (occurrence: ES)
  Receive Date: 20210309
  Receipt Date: 20210618
  Transmission Date: 20210717
  Serious: Yes (Death, Hospitalization, Other)
  Sender: FDA-Public Use
  Company Number: ES-VELOXIS PHARMACEUTICALS-2020VELES-001131

PATIENT
  Age: 52 Year
  Sex: Female

DRUGS (9)
  1. AZACITIDINE. [Suspect]
     Active Substance: AZACITIDINE
     Indication: ACUTE MYELOID LEUKAEMIA REFRACTORY
     Dosage: 75 MG/M2, CYCLIC (1?7)
     Route: 065
     Dates: start: 20200120
  2. GILTERITINIB [Suspect]
     Active Substance: GILTERITINIB
     Indication: ACUTE MYELOID LEUKAEMIA REFRACTORY
     Dosage: 140 MILLIGRAM, QD
     Route: 065
     Dates: start: 20200131, end: 20200511
  3. ENVARSUS XR [Suspect]
     Active Substance: TACROLIMUS
     Dosage: VARIABLE DOSE ENDED WITH 0.5 MG, DAILY (IN 24 HOURS)
     Route: 048
     Dates: end: 20190402
  4. AZACITIDINE. [Suspect]
     Active Substance: AZACITIDINE
     Dosage: UNK, CYCLIC (4TH CYCLE)
     Route: 065
     Dates: start: 20200525
  5. GILTERITINIB [Suspect]
     Active Substance: GILTERITINIB
     Dosage: UNK, UNKNOWN FREQ. (RESTARTED)
     Route: 065
     Dates: start: 20200522, end: 20200611
  6. ENVARSUS XR [Suspect]
     Active Substance: TACROLIMUS
     Indication: IMMUNOSUPPRESSION
     Dosage: UNK UNK, UNKNOWN FREQ.
     Route: 065
  7. AZACITIDINE. [Suspect]
     Active Substance: AZACITIDINE
     Dosage: UNK, CYCLIC (2ND CYCLE)
     Route: 065
     Dates: start: 20200218
  8. ENVARSUS XR [Suspect]
     Active Substance: TACROLIMUS
     Dosage: 4 MG, QD (IN 24 HOURS)
     Route: 048
     Dates: start: 20190217
  9. AZACITIDINE. [Suspect]
     Active Substance: AZACITIDINE
     Dosage: UNK, CYCLIC (3RD CYCLE)
     Route: 065
     Dates: start: 20200326

REACTIONS (33)
  - Fungal skin infection [Unknown]
  - Portal vein thrombosis [Recovered/Resolved]
  - Haemorrhage [Not Recovered/Not Resolved]
  - Off label use [Unknown]
  - Shock haemorrhagic [Recovered/Resolved]
  - Central nervous system fungal infection [Unknown]
  - Escherichia test positive [Not Recovered/Not Resolved]
  - Aplasia [Not Recovered/Not Resolved]
  - Disseminated aspergillosis [Unknown]
  - Liver abscess [Unknown]
  - Gastrointestinal haemorrhage [Unknown]
  - Gastrointestinal haemorrhage [Recovered/Resolved]
  - Candida infection [Not Recovered/Not Resolved]
  - Abdominal pain [Not Recovered/Not Resolved]
  - Stenotrophomonas infection [Recovered/Resolved]
  - Leukaemic infiltration extramedullary [Unknown]
  - Graft versus host disease in liver [Not Recovered/Not Resolved]
  - Dilatation intrahepatic duct acquired [Not Recovered/Not Resolved]
  - Myeloid leukaemia [Not Recovered/Not Resolved]
  - Staphylococcus test positive [Not Recovered/Not Resolved]
  - General physical health deterioration [Not Recovered/Not Resolved]
  - Hepatic mass [Unknown]
  - Infection [Unknown]
  - Product use issue [Unknown]
  - Febrile neutropenia [Recovered/Resolved]
  - Pyrexia [Not Recovered/Not Resolved]
  - Pancytopenia [Unknown]
  - Hepatic function abnormal [Not Recovered/Not Resolved]
  - Cholangiocarcinoma [Unknown]
  - Multiple organ dysfunction syndrome [Fatal]
  - Noninfective sialoadenitis [Recovered/Resolved]
  - Bronchopulmonary aspergillosis [Unknown]
  - Biliary tract infection fungal [Not Recovered/Not Resolved]

NARRATIVE: CASE EVENT DATE: 20190220
